FAERS Safety Report 25468621 (Version 1)
Quarter: 2025Q2

REPORT INFORMATION
  Report Type: Spontaneous
  Country: PK (occurrence: PK)
  Receive Date: 20250623
  Receipt Date: 20250623
  Transmission Date: 20250716
  Serious: Yes (Other)
  Sender: PFIZER
  Company Number: PK-PFIZER INC-PV202300122015

PATIENT
  Age: 68 Year
  Sex: Female

DRUGS (5)
  1. IBRANCE [Suspect]
     Active Substance: PALBOCICLIB
     Indication: Breast cancer metastatic
     Route: 048
     Dates: start: 202212
  2. IBRANCE [Suspect]
     Active Substance: PALBOCICLIB
     Route: 048
  3. IBRANCE [Suspect]
     Active Substance: PALBOCICLIB
     Route: 048
  4. ARIMIDEX [Concomitant]
     Active Substance: ANASTROZOLE
     Dosage: 1 MG, DAILY
  5. OSNATE D [Concomitant]
     Dosage: 1 DF, DAILY

REACTIONS (5)
  - Deep vein thrombosis [Unknown]
  - Thrombosis [Unknown]
  - Wound [Recovering/Resolving]
  - White blood cell count decreased [Unknown]
  - Off label use [Unknown]
